FAERS Safety Report 5002681-0 (Version None)
Quarter: 2006Q2

REPORT INFORMATION
  Report Type: 
  Country: None (occurrence: None)
  Receive Date: 20060510
  Receipt Date: 20060502
  Transmission Date: 20061013
  Serious: Yes (Hospitalization)
  Sender: FDA-Public Use
  Company Number: 2006046731

PATIENT
  Age: 36 Year
  Sex: Male

DRUGS (3)
  1. SOMATROPIN (SOMATROPIN) [Suspect]
     Indication: OFF LABEL USE
     Dosage: (4           I.U.)
  2. TESTOSTERONE PROPIONATE (TESTOSTERONE PROPIONATE) [Concomitant]
  3. STANOZOLOL [Concomitant]

REACTIONS (8)
  - DRUG ABUSER [None]
  - DYSPHONIA [None]
  - GENERAL PHYSICAL HEALTH DETERIORATION [None]
  - INSOMNIA [None]
  - LARYNGOCELE [None]
  - MUCOSAL DRYNESS [None]
  - NOCTURNAL DYSPNOEA [None]
  - STRIDOR [None]
